FAERS Safety Report 6810761-X (Version None)
Quarter: 2010Q2

REPORT INFORMATION
  Report Type: 
  Country: None (occurrence: None)
  Receive Date: 20100630
  Receipt Date: 20070803
  Transmission Date: 20101027
  Serious: No
  Sender: FDA-Public Use
  Company Number: US-PFIZER INC-2007065826

PATIENT
  Sex: Female

DRUGS (2)
  1. NICOTROL [Suspect]
     Indication: SMOKING CESSATION THERAPY
     Route: 055
     Dates: start: 20070401, end: 20070401
  2. ANXIOLYTICS [Concomitant]

REACTIONS (1)
  - THROAT IRRITATION [None]
